FAERS Safety Report 7606008-7 (Version None)
Quarter: 2011Q3

REPORT INFORMATION
  Report Type: 
  Country: None (occurrence: None)
  Receive Date: 20110713
  Receipt Date: 20110630
  Transmission Date: 20111222
  Serious: Yes (Other)
  Sender: FDA-Public Use
  Company Number: PHFR2011GB02284

PATIENT
  Sex: Female

DRUGS (1)
  1. FEMARA [Suspect]
     Dates: start: 20100401

REACTIONS (7)
  - RASH [None]
  - ALOPECIA [None]
  - ANXIETY [None]
  - BENIGN HEPATIC NEOPLASM [None]
  - JAUNDICE [None]
  - PANCREATIC ENLARGEMENT [None]
  - PANCREATIC CARCINOMA [None]
